FAERS Safety Report 10506740 (Version 1)
Quarter: 2014Q4

REPORT INFORMATION
  Report Type: Spontaneous
  Country: ES (occurrence: None)
  Receive Date: 20141007
  Receipt Date: 20141007
  Transmission Date: 20150528
  Serious: Yes (Hospitalization)
  Sender: FDA-Public Use
  Company Number: 2557682

PATIENT
  Age: 75 Year
  Sex: Male

DRUGS (3)
  1. OXALIPLATIN. [Suspect]
     Active Substance: OXALIPLATIN
     Indication: COLORECTAL CANCER METASTATIC
     Dosage: NOT REPORTED, CYCLICAL, UNKNOWN
  2. IOHEXOL [Suspect]
     Active Substance: IOHEXOL
     Indication: IMAGING PROCEDURE
  3. CAPECITABINE. [Concomitant]
     Active Substance: CAPECITABINE

REACTIONS (1)
  - Drug reaction with eosinophilia and systemic symptoms [None]
